FAERS Safety Report 8872959 (Version 1)
Quarter: 2012Q4

REPORT INFORMATION
  Report Type: 
  Country: DK (occurrence: DK)
  Receive Date: 20121029
  Receipt Date: 20121029
  Transmission Date: 20130627
  Serious: Yes (Hospitalization)
  Sender: FDA-Public Use
  Company Number: PHHY2012DK095642

PATIENT
  Age: 89 Year
  Sex: Female

DRUGS (9)
  1. RAMIPRIL [Suspect]
     Indication: BLOOD PRESSURE
     Dosage: 2.5 mg daily
     Route: 048
     Dates: end: 20120514
  2. BONVIVA [Suspect]
     Indication: OSTEOPOROSIS
     Dosage: 150 mg monthly
     Route: 048
     Dates: end: 20120514
  3. FELODIPINE [Suspect]
     Indication: BLOOD PRESSURE
     Dosage: 5 mg daily
     Route: 048
     Dates: end: 20120514
  4. FURIX [Concomitant]
  5. KALEORID [Concomitant]
  6. METFORMIN [Concomitant]
  7. PAMOL [Concomitant]
  8. UNIKALK SENIOR [Concomitant]
  9. NORSPAN//BUPRENORPHINE [Concomitant]

REACTIONS (4)
  - Decreased appetite [Recovered/Resolved]
  - Dehydration [Recovered/Resolved]
  - Hyponatraemia [Recovered/Resolved]
  - Nausea [Recovered/Resolved]
